FAERS Safety Report 21206777 (Version 1)
Quarter: 2022Q3

REPORT INFORMATION
  Report Type: Spontaneous
  Country: US (occurrence: US)
  Receive Date: 20220812
  Receipt Date: 20220812
  Transmission Date: 20221026
  Serious: No
  Sender: FDA-Public Use
  Company Number: US-GSK-US2022AMR117818

PATIENT
  Sex: Female

DRUGS (1)
  1. BENLYSTA [Suspect]
     Active Substance: BELIMUMAB
     Indication: Sjogren^s syndrome
     Dosage: 200 MG/ML, WE
     Route: 058
     Dates: start: 2020

REACTIONS (4)
  - Dizziness [Unknown]
  - Balance disorder [Unknown]
  - Product storage error [Unknown]
  - Off label use [Unknown]
